FAERS Safety Report 16083495 (Version 1)
Quarter: 2019Q1

REPORT INFORMATION
  Report Type: Spontaneous
  Country: RU (occurrence: RU)
  Receive Date: 20190318
  Receipt Date: 20190318
  Transmission Date: 20190418
  Serious: Yes (Life-Threatening)
  Sender: FDA-Public Use
  Company Number: RU-BEH-2019100228

PATIENT
  Age: 19 Year
  Sex: Female

DRUGS (1)
  1. PRIVIGEN [Suspect]
     Active Substance: HUMAN IMMUNOGLOBULIN G
     Indication: PRIMARY IMMUNODEFICIENCY SYNDROME
     Dosage: 200 ML, UNK
     Route: 042
     Dates: start: 20110101

REACTIONS (2)
  - Drug ineffective [Unknown]
  - Vascular pain [Unknown]

NARRATIVE: CASE EVENT DATE: 20110101
